FAERS Safety Report 23179967 (Version 2)
Quarter: 2023Q4

REPORT INFORMATION
  Report Type: Spontaneous
  Country: US (occurrence: US)
  Receive Date: 20231114
  Receipt Date: 20231116
  Transmission Date: 20240109
  Serious: No
  Sender: FDA-Public Use
  Company Number: US-002147023-NVSC2023US242033

PATIENT
  Sex: Male

DRUGS (1)
  1. TABRECTA [Suspect]
     Active Substance: CAPMATINIB
     Indication: Oesophageal carcinoma
     Dosage: 200 MG, BID
     Route: 065

REACTIONS (2)
  - Dysphagia [Unknown]
  - Oesophageal pain [Unknown]
